FAERS Safety Report 7939086-6 (Version None)
Quarter: 2011Q4

REPORT INFORMATION
  Report Type: 
  Country: None (occurrence: None)
  Receive Date: 20111124
  Receipt Date: 20111116
  Transmission Date: 20120403
  Serious: Yes (Hospitalization)
  Sender: FDA-Public Use
  Company Number: DK-JNJFOC-20111101498

PATIENT
  Sex: Male
  Weight: 103 kg

DRUGS (4)
  1. ABIRATERONE ACETATE [Suspect]
     Indication: PROSTATE CANCER METASTATIC
     Route: 048
     Dates: start: 20111014
  2. ABIRATERONE ACETATE [Suspect]
     Route: 048
  3. ZOLADEX [Concomitant]
     Indication: HORMONE THERAPY
     Route: 065
  4. PREDNISOLONE [Suspect]
     Indication: PROSTATE CANCER METASTATIC
     Route: 065
     Dates: start: 20111014

REACTIONS (1)
  - URINARY TRACT INFECTION [None]
